FAERS Safety Report 24531310 (Version 1)
Quarter: 2024Q4

REPORT INFORMATION
  Report Type: Report from Study
  Country: US (occurrence: US)
  Receive Date: 20241022
  Receipt Date: 20241022
  Transmission Date: 20250115
  Serious: No
  Sender: ROCHE
  Company Number: US-ROCHE-2812833

PATIENT
  Age: 41 Year
  Sex: Female

DRUGS (42)
  1. PULMOZYME [Suspect]
     Active Substance: DORNASE ALFA
     Indication: Cystic fibrosis
     Dosage: NEBULIZE THE CONTENTS OF 1 VIAL(S) TWICE A DAY (AMPUL)
     Route: 065
  2. PULMOZYME [Suspect]
     Active Substance: DORNASE ALFA
     Dosage: 1 MG/ML,
     Route: 055
  3. TAMIFLU [Suspect]
     Active Substance: OSELTAMIVIR PHOSPHATE
     Indication: Product used for unknown indication
     Route: 065
  4. PROVENTIL [Concomitant]
     Active Substance: ALBUTEROL
  5. BROVANA [Concomitant]
     Active Substance: ARFORMOTEROL TARTRATE
  6. BROVANA [Concomitant]
     Active Substance: ARFORMOTEROL TARTRATE
  7. ZITHROMAX [Concomitant]
     Active Substance: AZITHROMYCIN DIHYDRATE
     Route: 048
  8. CAYSTON [Concomitant]
     Active Substance: AZTREONAM
  9. VITAMIN B COMPLEX [Concomitant]
     Active Substance: CYANOCOBALAMIN\DEXPANTHENOL\NIACINAMIDE\PYRIDOXINE HYDROCHLORIDE\RIBOFLAVIN 5^-PHOSPHATE SODIUM\THIA
     Route: 060
  10. PULMICORT RESPULES [Concomitant]
     Active Substance: BUDESONIDE
  11. CALCIUM CARBONATE [Concomitant]
     Active Substance: CALCIUM CARBONATE
     Route: 048
  12. DEXILANT [Concomitant]
     Active Substance: DEXLANSOPRAZOLE
     Route: 048
  13. PEPCID [Concomitant]
     Active Substance: FAMOTIDINE
     Route: 048
  14. FERROUS GLUCONATE [Concomitant]
     Active Substance: FERROUS GLUCONATE
     Route: 048
  15. FLONASE [Concomitant]
     Active Substance: FLUTICASONE PROPIONATE
  16. NEURONTIN [Concomitant]
     Active Substance: GABAPENTIN
  17. GLUCAGON [Concomitant]
     Active Substance: GLUCAGON
     Route: 058
  18. NORCO [Concomitant]
     Active Substance: ACETAMINOPHEN\HYDROCODONE BITARTRATE
     Route: 048
  19. MOTRIN [Concomitant]
     Active Substance: IBUPROFEN
  20. HUMULIN R [Concomitant]
     Active Substance: INSULIN HUMAN
  21. LEVOXYL [Concomitant]
     Active Substance: LEVOTHYROXINE SODIUM
     Route: 048
  22. AMITIZA [Concomitant]
     Active Substance: LUBIPROSTONE
     Route: 048
  23. TRIKAFTA [Concomitant]
     Active Substance: ELEXACAFTOR\IVACAFTOR\TEZACAFTOR
  24. DEXILANT [Concomitant]
     Active Substance: DEXLANSOPRAZOLE
  25. VALERIAN [Concomitant]
     Active Substance: VALERIAN
  26. ACTIGALL [Concomitant]
     Active Substance: URSODIOL
  27. INCRUSE ELLIPTA [Concomitant]
     Active Substance: UMECLIDINIUM BROMIDE
  28. DESYREL [Concomitant]
     Active Substance: TRAZODONE HYDROCHLORIDE
  29. SODIUM CHLORIDE [Concomitant]
     Active Substance: SODIUM CHLORIDE
  30. KLOR CON M [Concomitant]
     Active Substance: POTASSIUM CHLORIDE
  31. CREON [Concomitant]
     Active Substance: PANCRELIPASE AMYLASE\PANCRELIPASE LIPASE\PANCRELIPASE PROTEASE
  32. ZOFRAN [Concomitant]
     Active Substance: ONDANSETRON HYDROCHLORIDE
  33. FISH OIL [Concomitant]
     Active Substance: FISH OIL
  34. MYCOSTATIN [Concomitant]
     Active Substance: NYSTATIN
  35. DEKASOL [Concomitant]
  36. SINGULAIR [Concomitant]
     Active Substance: MONTELUKAST SODIUM
  37. MINOCIN [Concomitant]
     Active Substance: MINOCYCLINE HYDROCHLORIDE
  38. PROAMATINE [Concomitant]
     Active Substance: MIDODRINE HYDROCHLORIDE
  39. GLUCOPHAGE XR [Concomitant]
     Active Substance: METFORMIN HYDROCHLORIDE
  40. GLUCOPHAGE XR [Concomitant]
     Active Substance: METFORMIN HYDROCHLORIDE
  41. MELATONIN [Concomitant]
     Active Substance: MELATONIN
  42. MAGNESIUM [Concomitant]
     Active Substance: MAGNESIUM

REACTIONS (2)
  - Off label use [Unknown]
  - Drug hypersensitivity [Unknown]
